FAERS Safety Report 5501234-5 (Version None)
Quarter: 2007Q4

REPORT INFORMATION
  Report Type: 
  Country: None (occurrence: None)
  Receive Date: 20071029
  Receipt Date: 20071017
  Transmission Date: 20080405
  Serious: Yes (Other)
  Sender: FDA-Public Use
  Company Number: US-PFIZER INC-2007088237

PATIENT
  Sex: Female
  Weight: 108.9 kg

DRUGS (3)
  1. CHANTIX [Suspect]
     Indication: SMOKING CESSATION THERAPY
  2. VALSARTAN [Concomitant]
     Indication: HYPERTENSION
  3. NEXIUM [Concomitant]

REACTIONS (3)
  - DYSGEUSIA [None]
  - PAROSMIA [None]
  - UTERINE DISORDER [None]
